FAERS Safety Report 20064977 (Version 2)
Quarter: 2022Q1

REPORT INFORMATION
  Report Type: Report from Study
  Country: US (occurrence: US)
  Receive Date: 20211113
  Receipt Date: 20220128
  Transmission Date: 20220423
  Serious: Yes (Other)
  Sender: FDA-Public Use
  Company Number: US-ABBVIE-21K-163-4155137-00

PATIENT
  Sex: Female
  Weight: 48 kg

DRUGS (32)
  1. CREON [Suspect]
     Active Substance: PANCRELIPASE AMYLASE\PANCRELIPASE LIPASE\PANCRELIPASE PROTEASE
     Indication: Product used for unknown indication
     Route: 048
     Dates: start: 20210722
  2. ACYCLOVIR [Concomitant]
     Active Substance: ACYCLOVIR
     Indication: Product used for unknown indication
     Route: 048
     Dates: start: 20210924
  3. BENADRYL [Concomitant]
     Active Substance: DIPHENHYDRAMINE HYDROCHLORIDE
     Indication: Product used for unknown indication
  4. CLONAZEPAM [Concomitant]
     Active Substance: CLONAZEPAM
     Indication: Product used for unknown indication
  5. BETAMETHASONE CLOTRIMAZOLE [Concomitant]
     Active Substance: BETAMETHASONE DIPROPIONATE\CLOTRIMAZOLE
     Indication: Product used for unknown indication
     Dosage: 1 % 0.05 % TOPICAL CREAM
  6. FLUTICASONE PROPIONATE [Concomitant]
     Active Substance: FLUTICASONE PROPIONATE
     Indication: Product used for unknown indication
     Dosage: 50 MG SPRAY 1 SPRAY DAILY
  7. GABAPENTIN [Concomitant]
     Active Substance: GABAPENTIN
     Indication: Product used for unknown indication
     Dosage: TAKE 1 TO 2 CAPSULES BY MOUTH AT BEDTIME
  8. GAS-X [Concomitant]
     Active Substance: DIMETHICONE
     Indication: Flatulence
  9. HYDROCORTISONE [Concomitant]
     Active Substance: HYDROCORTISONE
     Indication: Product used for unknown indication
     Dosage: 2.5 % TOPICAL CREAM
  10. HYDROXYZINE HYDROCHLORIDE [Concomitant]
     Active Substance: HYDROXYZINE HYDROCHLORIDE
     Indication: Product used for unknown indication
  11. LEVOTHYROXINE [Concomitant]
     Active Substance: LEVOTHYROXINE
     Indication: Product used for unknown indication
  12. NITROFURANTOIN MONOHYDRATE MACROCRYSTALS [Concomitant]
     Active Substance: NITROFURANTOIN\NITROFURANTOIN MONOHYDRATE
     Indication: Product used for unknown indication
  13. ONDANSETRON HCL [Concomitant]
     Active Substance: ONDANSETRON HYDROCHLORIDE
     Indication: Product used for unknown indication
  14. PREDNISONE [Concomitant]
     Active Substance: PREDNISONE
     Indication: Product used for unknown indication
  15. PROCHLORPERAZINE MALEATE [Concomitant]
     Active Substance: PROCHLORPERAZINE MALEATE
     Indication: Product used for unknown indication
  16. PROLIA [Concomitant]
     Active Substance: DENOSUMAB
     Indication: Product used for unknown indication
     Dosage: 60 MG/ML SUBCUTANEOUS SYRINGE
  17. REPATHA [Concomitant]
     Active Substance: EVOLOCUMAB
     Indication: Product used for unknown indication
     Dosage: 140 MG/ML SUBCUTANEOUS PEN INJECTOR
  18. TYLENOL [Concomitant]
     Active Substance: ACETAMINOPHEN
     Indication: Product used for unknown indication
     Dosage: 2 AS NEEDED
  19. MODERNA COVID-19 VACCINE [Concomitant]
     Active Substance: ELASOMERAN
     Indication: COVID-19 immunisation
     Dates: start: 20210113, end: 20210113
  20. MODERNA COVID-19 VACCINE [Concomitant]
     Active Substance: ELASOMERAN
     Dates: start: 20210210, end: 20210210
  21. MODERNA COVID-19 VACCINE [Concomitant]
     Active Substance: ELASOMERAN
     Dates: start: 20210824, end: 20210824
  22. TETANUS TOXOID, REDUCED DIPHTHERIA TOXOID AND ACELLULAR PERTUSSIS VACC [Concomitant]
     Active Substance: TETANUS TOXOID, REDUCED DIPHTHERIA TOXOID AND ACELLULAR PERTUSSIS VACCINE ADSORBED, TDAP
     Indication: Product used for unknown indication
     Dates: start: 2012, end: 2012
  23. INFLUENZA VIRUS VACCINE [Concomitant]
     Active Substance: INFLUENZA VIRUS VACCINE
     Indication: Product used for unknown indication
     Dates: start: 20141106, end: 20141106
  24. INFLUENZA VIRUS VACCINE [Concomitant]
     Active Substance: INFLUENZA VIRUS VACCINE
     Dosage: SEQLRUS
     Route: 030
     Dates: start: 20171031, end: 20171031
  25. INFLUENZA VIRUS VACCINE [Concomitant]
     Active Substance: INFLUENZA VIRUS VACCINE
     Dosage: SEQLRUS
     Route: 030
     Dates: start: 20181030, end: 20181030
  26. INFLUENZA VIRUS VACCINE [Concomitant]
     Active Substance: INFLUENZA VIRUS VACCINE
     Dosage: SEQLRUS
     Route: 030
     Dates: start: 20191015, end: 20191015
  27. INFLUENZA VIRUS VACCINE [Concomitant]
     Active Substance: INFLUENZA VIRUS VACCINE
     Dates: start: 20210927, end: 20210927
  28. PNEUMOCOCCAL 13-VALENT CONJUGATE VACCINE [Concomitant]
     Active Substance: PNEUMOCOCCAL 13-VALENT CONJUGATE VACCINE
     Indication: Product used for unknown indication
     Dates: start: 20120101, end: 20120101
  29. PNEUMOCOCCAL 13-VALENT CONJUGATE VACCINE [Concomitant]
     Active Substance: PNEUMOCOCCAL 13-VALENT CONJUGATE VACCINE
     Dosage: PFIZER, INC
     Route: 030
     Dates: start: 20151218, end: 20151218
  30. ZOSTER [Concomitant]
     Indication: Product used for unknown indication
     Dosage: ZOSTER LIVE
     Dates: start: 20110101, end: 20110101
  31. ZOSTER [Concomitant]
     Dosage: ZOSTER RECOMBINANT
     Dates: start: 20180521, end: 20180521
  32. ZOSTER [Concomitant]
     Dosage: ZOSTER RECOMBINANT
     Dates: start: 20180813, end: 20180813

REACTIONS (21)
  - Pancreatic carcinoma [Not Recovered/Not Resolved]
  - Systemic lupus erythematosus [Unknown]
  - Diarrhoea [Unknown]
  - Oedema peripheral [Unknown]
  - Musculoskeletal chest pain [Unknown]
  - Connective tissue disorder [Unknown]
  - Menopausal symptoms [Unknown]
  - Dermatitis [Unknown]
  - Lumbar spinal stenosis [Unknown]
  - Insomnia [Unknown]
  - Ataxia [Unknown]
  - Dyspnoea [Unknown]
  - Oedema [Unknown]
  - Osteopenia [Unknown]
  - Blood urine present [Unknown]
  - Sinusitis [Unknown]
  - Type IIa hyperlipidaemia [Unknown]
  - Furuncle [Unknown]
  - Gastritis [Unknown]
  - Humerus fracture [Unknown]
  - Urinary tract infection [Unknown]

NARRATIVE: CASE EVENT DATE: 20210101
